FAERS Safety Report 17394116 (Version 2)
Quarter: 2020Q1

REPORT INFORMATION
  Report Type: Report from Study
  Country: FR (occurrence: FR)
  Receive Date: 20200210
  Receipt Date: 20200217
  Transmission Date: 20200409
  Serious: Yes (Hospitalization)
  Sender: FDA-Public Use
  Company Number: FR-ROCHE-2543157

PATIENT
  Age: 70 Year
  Sex: Male
  Weight: 75.8 kg

DRUGS (9)
  1. TRAMADOL. [Concomitant]
     Active Substance: TRAMADOL
  2. POTASSIUM PHOSPHATE MONOBASIC [Concomitant]
     Active Substance: POTASSIUM PHOSPHATE, MONOBASIC
  3. ATEZOLIZUMAB. [Suspect]
     Active Substance: ATEZOLIZUMAB
     Indication: HEPATOCELLULAR CARCINOMA
  4. CABOZANTINIB [Suspect]
     Active Substance: CABOZANTINIB
     Indication: HEPATOCELLULAR CARCINOMA
     Route: 048
     Dates: start: 20191126
  5. ATEZOLIZUMAB. [Suspect]
     Active Substance: ATEZOLIZUMAB
     Indication: HEPATOCELLULAR CARCINOMA
     Route: 041
     Dates: start: 20191126
  6. CABOZANTINIB [Suspect]
     Active Substance: CABOZANTINIB
     Indication: HEPATOCELLULAR CARCINOMA
  7. KARDEGIC [Concomitant]
     Active Substance: ASPIRIN DL-LYSINE
  8. ZOPICLONE [Concomitant]
     Active Substance: ZOPICLONE
  9. ARTISIAL [Concomitant]
     Active Substance: CALCIUM CHLORIDE\MAGNESIUM CHLORIDE\POTASSIUM CHLORIDE\POTASSIUM PHOSPHATE, DIBASIC\POTASSIUM PHOSPHATE, MONOBASIC\SODIUM CHLORIDE

REACTIONS (1)
  - Interstitial lung disease [Not Recovered/Not Resolved]

NARRATIVE: CASE EVENT DATE: 20200123
